FAERS Safety Report 8618251-9 (Version None)
Quarter: 2012Q3

REPORT INFORMATION
  Report Type: 
  Country: None (occurrence: None)
  Receive Date: 20120824
  Receipt Date: 20120817
  Transmission Date: 20120928
  Serious: Yes (Hospitalization, Other)
  Sender: FDA-Public Use
  Company Number: US-BIOGENIDEC-2010BI028173

PATIENT
  Age: 55 Year
  Sex: Female

DRUGS (11)
  1. ALBUTEROL [Concomitant]
  2. CLARITIN [Concomitant]
  3. NEURONTIN [Concomitant]
  4. LEXAPRO [Concomitant]
     Route: 048
  5. VITAMIN D [Concomitant]
     Indication: VITAMIN D DECREASED
  6. TYSABRI [Suspect]
     Indication: MULTIPLE SCLEROSIS
     Route: 042
     Dates: start: 20071108, end: 20100630
  7. CALCIUM [Concomitant]
  8. NEURONTIN [Concomitant]
  9. CRESTOR [Concomitant]
  10. LEXAPRO [Concomitant]
     Route: 048
  11. PRILOSEC [Concomitant]

REACTIONS (3)
  - PROGRESSIVE MULTIFOCAL LEUKOENCEPHALOPATHY [None]
  - VITH NERVE PARALYSIS [None]
  - IMMUNE RECONSTITUTION SYNDROME [None]
